FAERS Safety Report 15862848 (Version 1)
Quarter: 2018Q4

REPORT INFORMATION
  Report Type: Spontaneous
  Country: US (occurrence: US)
  Receive Date: 20181231
  Receipt Date: 20181231
  Transmission Date: 20190205
  Serious: No
  Sender: FDA-Public Use
  Company Number: None

PATIENT
  Age: 79 Year
  Sex: Male

DRUGS (1)
  1. MYCOPHENOLIC TAB 360MG DR -- TO BE DELETED [Suspect]
     Active Substance: MYCOPHENOLIC ACID
     Route: 048
     Dates: start: 20181218

REACTIONS (2)
  - Therapy cessation [None]
  - Memory impairment [None]

NARRATIVE: CASE EVENT DATE: 20181221
